FAERS Safety Report 9766812 (Version 1)
Quarter: 2013Q4

REPORT INFORMATION
  Report Type: Spontaneous
  Country: US (occurrence: US)
  Receive Date: 20131217
  Receipt Date: 20131217
  Transmission Date: 20140711
  Serious: No
  Sender: FDA-Public Use
  Company Number: US-GLAXOSMITHKLINE-A1033644A

PATIENT
  Age: 51 Year
  Sex: Male
  Weight: 81.8 kg

DRUGS (5)
  1. VOTRIENT [Suspect]
     Indication: PRODUCT USED FOR UNKNOWN INDICATION
     Dosage: 800MG PER DAY
     Route: 048
     Dates: end: 20130628
  2. METOPROLOL [Concomitant]
  3. PRAVASTATIN [Concomitant]
  4. AMLODIPINE [Concomitant]
  5. LOSARTAN WITH HYDROCHLOROTHIAZIDE [Concomitant]

REACTIONS (2)
  - Drug ineffective [Unknown]
  - Therapy cessation [Unknown]
